FAERS Safety Report 4308494-7 (Version None)
Quarter: 2004Q1

REPORT INFORMATION
  Report Type: 
  Country: None (occurrence: None)
  Receive Date: 20040301
  Receipt Date: 20040120
  Transmission Date: 20041129
  Serious: Yes (Death, Hospitalization)
  Sender: FDA-Public Use
  Company Number: PHRM2004FR00609

PATIENT
  Age: 69 Year
  Sex: Male
  Weight: 80 kg

DRUGS (7)
  1. ZOMETA [Suspect]
     Indication: HYPERCALCAEMIA OF MALIGNANCY
     Dosage: 4 MG, QMO
     Route: 042
     Dates: start: 20031205, end: 20031205
  2. ZOMETA [Suspect]
     Dosage: 2 MG, QMO
     Route: 042
     Dates: start: 20031227, end: 20031227
  3. TERCIAN [Suspect]
     Indication: CONFUSIONAL STATE
     Dates: start: 20031227, end: 20040105
  4. DOLIPRANE [Concomitant]
     Indication: BACK PAIN
     Dates: start: 20031203, end: 20040108
  5. MORPHINE [Concomitant]
     Indication: BACK PAIN
     Dates: start: 20031208, end: 20031227
  6. SOLU-MEDROL [Concomitant]
     Dates: start: 20031227, end: 20031227
  7. AUGMENTIN [Concomitant]
     Dosage: UNK, UNK
     Dates: start: 20031227, end: 20040107

REACTIONS (3)
  - BIOPSY BONE MARROW ABNORMAL [None]
  - BONE MARROW DEPRESSION [None]
  - PANCYTOPENIA [None]
